FAERS Safety Report 15366977 (Version 1)
Quarter: 2018Q3

REPORT INFORMATION
  Report Type: Spontaneous
  Country: FR (occurrence: FR)
  Receive Date: 20180910
  Receipt Date: 20180910
  Transmission Date: 20181010
  Serious: Yes (Hospitalization)
  Sender: FDA-Public Use
  Company Number: FR-PFIZER INC-2018355743

PATIENT
  Age: 51 Year
  Sex: Male
  Weight: 38 kg

DRUGS (5)
  1. NEURONTIN [Suspect]
     Active Substance: GABAPENTIN
     Dosage: 200 MG, UNK
  2. ACTISKENAN [Suspect]
     Active Substance: MORPHINE SULFATE
     Dosage: 10 MG, UNK
  3. PARACETAMOL [Suspect]
     Active Substance: ACETAMINOPHEN
     Dosage: 1 G, UNK
  4. NEURONTIN [Suspect]
     Active Substance: GABAPENTIN
     Dosage: 600 MG, UNK
  5. SKENAN [Suspect]
     Active Substance: MORPHINE SULFATE
     Dosage: 80 MG, UNK

REACTIONS (4)
  - General physical health deterioration [Not Recovered/Not Resolved]
  - Overdose [Not Recovered/Not Resolved]
  - Malignant neoplasm progression [Not Recovered/Not Resolved]
  - Drug intolerance [Recovered/Resolved]

NARRATIVE: CASE EVENT DATE: 20180413
